FAERS Safety Report 9601627 (Version 2)
Quarter: 2013Q4

REPORT INFORMATION
  Report Type: Spontaneous
  Country: US (occurrence: US)
  Receive Date: 20131007
  Receipt Date: 20131007
  Transmission Date: 20140711
  Serious: Yes (Hospitalization)
  Sender: FDA-Public Use
  Company Number: US-BRISTOL-MYERS SQUIBB COMPANY-18031336

PATIENT
  Age: 75 Year
  Sex: Female
  Weight: 104.31 kg

DRUGS (3)
  1. BYETTA PEN DISPOSABLE [Suspect]
     Indication: TYPE 2 DIABETES MELLITUS
     Dosage: THERAPY ON 2008 10MCG OD
     Route: 058
     Dates: start: 2005
  2. EXENATIDE 10MCG PEN, DISPOSABLE DEVICE [Concomitant]
  3. COUMADIN [Concomitant]

REACTIONS (4)
  - Osteoporosis [Not Recovered/Not Resolved]
  - Platelet count decreased [Recovering/Resolving]
  - Weight decreased [Not Recovered/Not Resolved]
  - Spinal disorder [Not Recovered/Not Resolved]
